FAERS Safety Report 4636677-5 (Version None)
Quarter: 2005Q2

REPORT INFORMATION
  Report Type: 
  Country: None (occurrence: None)
  Receive Date: 20050414
  Receipt Date: 20050401
  Transmission Date: 20051028
  Serious: Yes (Hospitalization)
  Sender: FDA-Public Use
  Company Number: GBR-2005-0001625

PATIENT
  Age: 78 Year
  Sex: Female

DRUGS (8)
  1. OXYCONTIN TABLETS 10 MG (OXYCONDONE HYDROCHLORIDE) CR TABLET [Suspect]
     Dosage: 20 MG, DAILY, ORAL
     Route: 048
     Dates: start: 20050226, end: 20050307
  2. MOVICOL (SODIUM BICARBONATE, POTASSIUM CHLORIDE, SODIUM CHLORIDE, MACR [Suspect]
     Dosage: 1 UNIT, DAILY, ORAL
     Route: 048
     Dates: start: 20050301, end: 20050309
  3. KEPPRA [Suspect]
     Dosage: 1 GRAM, DAILY, ORAL
     Route: 048
     Dates: start: 20041210
  4. VALPROIC ACID [Suspect]
     Dosage: ORAL
     Route: 048
     Dates: start: 20041210
  5. NEURONTIN [Suspect]
     Dosage: ORAL
     Route: 048
  6. PRAXILENE (NAFTIDROFURYL OXALATE) [Suspect]
     Dates: end: 20050309
  7. OMEPRAZOLE [Suspect]
     Dosage: 20 MG, DAILY, ORAL
     Route: 048
     Dates: start: 20050303, end: 20050307
  8. PROFENID ^RHONE POULENC^ (KETOPROFEN) [Suspect]
     Dosage: 100 MG, DAILY, ORAL
     Route: 048
     Dates: start: 20050303, end: 20050305

REACTIONS (4)
  - C-REACTIVE PROTEIN INCREASED [None]
  - INFLAMMATION [None]
  - PRURITUS [None]
  - RASH MORBILLIFORM [None]
